FAERS Safety Report 12958970 (Version 1)
Quarter: 2016Q4

REPORT INFORMATION
  Report Type: Spontaneous
  Country: US (occurrence: US)
  Receive Date: 20161117
  Receipt Date: 20161117
  Transmission Date: 20170207
  Serious: Yes (Hospitalization)
  Sender: FDA-Public Use
  Company Number: None

PATIENT
  Age: 81 Year
  Sex: Male

DRUGS (10)
  1. HEPARIN [Suspect]
     Active Substance: HEPARIN SODIUM
     Indication: PROPHYLAXIS
     Dosage: 8000 UNITS ONCE IV
     Route: 042
     Dates: start: 20160909, end: 20160909
  2. APIXABAN [Concomitant]
     Active Substance: APIXABAN
  3. INSULIN ASPART [Concomitant]
     Active Substance: INSULIN ASPART
  4. RANITIDINE. [Concomitant]
     Active Substance: RANITIDINE
  5. TAMSULOSIN [Concomitant]
     Active Substance: TAMSULOSIN
  6. METOPROLOL SUCCINATE. [Concomitant]
     Active Substance: METOPROLOL SUCCINATE
  7. ASPIRIN. [Concomitant]
     Active Substance: ASPIRIN
  8. ATORVASTATIN [Concomitant]
     Active Substance: ATORVASTATIN
  9. FLECAINIDE [Concomitant]
     Active Substance: FLECAINIDE
  10. RAMIPRIL. [Concomitant]
     Active Substance: RAMIPRIL

REACTIONS (3)
  - Hypotension [None]
  - Flushing [None]
  - Urticaria [None]

NARRATIVE: CASE EVENT DATE: 20160909
